FAERS Safety Report 13363965 (Version 2)
Quarter: 2017Q2

REPORT INFORMATION
  Report Type: Spontaneous
  Country: US (occurrence: US)
  Receive Date: 20170323
  Receipt Date: 20170505
  Transmission Date: 20170830
  Serious: No
  Sender: FDA-Public Use
  Company Number: US-ASTRAZENECA-2017SE28540

PATIENT
  Age: 25039 Day

DRUGS (1)
  1. BYDUREON [Suspect]
     Active Substance: EXENATIDE
     Dosage: 2.0MG UNKNOWN
     Route: 058

REACTIONS (4)
  - Dysstasia [Unknown]
  - Product quality issue [Not Recovered/Not Resolved]
  - Adverse event [Unknown]
  - Foot deformity [Unknown]

NARRATIVE: CASE EVENT DATE: 20170315
